FAERS Safety Report 7525989-3 (Version None)
Quarter: 2011Q2

REPORT INFORMATION
  Report Type: 
  Country: None (occurrence: None)
  Receive Date: 20110606
  Receipt Date: 20090112
  Transmission Date: 20111010
  Serious: Yes (Death, Other)
  Sender: FDA-Public Use
  Company Number: US-BAYER-200910291NA

PATIENT
  Age: 82 Year
  Sex: Male
  Weight: 73 kg

DRUGS (15)
  1. MANNITOL [Concomitant]
     Dosage: 375 G, UNK
     Route: 042
  2. ZESTRIL [Concomitant]
     Dosage: 20 MG, UNK
  3. TRASYLOL [Suspect]
     Indication: TRICUSPID VALVE REPAIR
  4. PLASMA [Concomitant]
     Dosage: 4 UNITS
     Route: 042
  5. DOBUTAMINE HYDROCHLORIDE [Concomitant]
     Dosage: TITRATED
     Route: 042
  6. HEPARIN [Concomitant]
     Dosage: 10,000 UNITS
     Route: 042
  7. FENTANYL [Concomitant]
     Dosage: 4 TO 8 MG
     Route: 042
  8. TRASYLOL [Suspect]
     Indication: CORONARY ARTERY BYPASS
     Dosage: 200 ML CARDIOPULMONARY BYPASS PRIME
     Route: 042
     Dates: start: 20030325, end: 20030325
  9. LASIX [Concomitant]
     Dosage: 10 MG, QD
     Route: 048
  10. PLATELETS [Concomitant]
     Dosage: 10 PACKS
     Route: 042
  11. TRASYLOL [Suspect]
     Indication: MITRAL VALVE REPAIR
  12. ZINACEF [Concomitant]
     Dosage: 1.5 G, UNK
     Route: 042
  13. PRIMACOR [Concomitant]
     Dosage: 12 CC
     Route: 042
  14. PRINIVIL [Concomitant]
     Dosage: 5 MG, QD
     Route: 048
  15. RED BLOOD CELLS [Concomitant]
     Dosage: 2 UNITS
     Route: 042
     Dates: start: 20030325

REACTIONS (12)
  - PAIN [None]
  - ANXIETY [None]
  - FEAR [None]
  - DEATH [None]
  - RENAL IMPAIRMENT [None]
  - RENAL INJURY [None]
  - RENAL FAILURE [None]
  - UNEVALUABLE EVENT [None]
  - EMOTIONAL DISTRESS [None]
  - STRESS [None]
  - ANHEDONIA [None]
  - INJURY [None]
